FAERS Safety Report 8561356-1 (Version None)
Quarter: 2012Q3

REPORT INFORMATION
  Report Type: 
  Country: None (occurrence: None)
  Receive Date: 20120802
  Receipt Date: 20120726
  Transmission Date: 20120928
  Serious: Yes (Hospitalization)
  Sender: FDA-Public Use
  Company Number: VE-B.I. PHARMACEUTICALS,INC./RIDGEFIELD-2012-RA-00195RA

PATIENT
  Age: 74 Year
  Sex: Male
  Weight: 78 kg

DRUGS (1)
  1. PRADAXA [Suspect]
     Indication: KNEE OPERATION
     Dosage: 220 MG
     Route: 048
     Dates: start: 20120702, end: 20120717

REACTIONS (1)
  - ISCHAEMIC STROKE [None]
